FAERS Safety Report 23816338 (Version 3)
Quarter: 2024Q3

REPORT INFORMATION
  Report Type: Spontaneous
  Country: TR (occurrence: None)
  Receive Date: 20240503
  Receipt Date: 20240824
  Transmission Date: 20241016
  Serious: Yes (Hospitalization)
  Sender: ASTRAZENECA
  Company Number: 2024A101611

PATIENT
  Age: 53 Year
  Sex: Female

DRUGS (8)
  1. BYETTA [Suspect]
     Active Substance: EXENATIDE
     Dosage: 5 MCG/40 MCL
  2. BYETTA [Suspect]
     Active Substance: EXENATIDE
     Dosage: 10 MCG/40 MCL DOSE 2X1 FOR THE LAST 1 YEAR
  3. ECOPIRIN PRO [Concomitant]
  4. METOPROLOL [Concomitant]
     Active Substance: METOPROLOL
  5. METFORMIN HYDROCHLORIDE [Concomitant]
     Active Substance: METFORMIN HYDROCHLORIDE
  6. ATACAND [Concomitant]
     Active Substance: CANDESARTAN CILEXETIL
  7. LEVOTHYROXINE SODIUM [Concomitant]
     Active Substance: LEVOTHYROXINE SODIUM
  8. DULOXETINE HYDROCHLORIDE [Concomitant]
     Active Substance: DULOXETINE HYDROCHLORIDE

REACTIONS (4)
  - Nausea [Recovered/Resolved]
  - Device use issue [Unknown]
  - Device leakage [Unknown]
  - Product quality issue [Unknown]

NARRATIVE: CASE EVENT DATE: 20240401
